FAERS Safety Report 11988741 (Version 2)
Quarter: 2016Q1

REPORT INFORMATION
  Report Type: Spontaneous
  Country: IE (occurrence: IE)
  Receive Date: 20160202
  Receipt Date: 20160203
  Transmission Date: 20160526
  Serious: Yes (Other)
  Sender: FDA-Public Use
  Company Number: IE-AMGEN-IRLSP2016010590

PATIENT
  Age: 29 Year
  Sex: Male

DRUGS (5)
  1. ENBREL [Suspect]
     Active Substance: ETANERCEPT
     Indication: ANKYLOSING SPONDYLITIS
     Dosage: 50 MG, UNK
     Route: 058
     Dates: start: 20160113
  2. ISONIAZID. [Concomitant]
     Active Substance: ISONIAZID
     Dosage: 300 MG, UNK
  3. DIFENE [Concomitant]
     Active Substance: DICLOFENAC SODIUM
     Dosage: 75 MG, 2X/DAY
  4. COLCHICINE. [Concomitant]
     Active Substance: COLCHICINE
     Dosage: UNK
  5. MEXAZOLE [Concomitant]
     Dosage: UNK

REACTIONS (2)
  - Self-injurious ideation [Unknown]
  - Pericarditis [Unknown]

NARRATIVE: CASE EVENT DATE: 20160125
